FAERS Safety Report 11673460 (Version 7)
Quarter: 2016Q4

REPORT INFORMATION
  Report Type: Report from Study
  Country: DE (occurrence: DE)
  Receive Date: 20151028
  Receipt Date: 20161222
  Transmission Date: 20170206
  Serious: Yes (Death, Hospitalization, Other)
  Sender: FDA-Public Use
  Company Number: DE-ROCHE-1651468

PATIENT
  Age: 65 Year
  Sex: Male
  Weight: 64 kg

DRUGS (1)
  1. ESBRIET [Suspect]
     Active Substance: PIRFENIDONE
     Indication: IDIOPATHIC PULMONARY FIBROSIS
     Dosage: 2 CAPSULES 3 TIMES A DAY
     Route: 048
     Dates: start: 20130917

REACTIONS (5)
  - Sunburn [Recovering/Resolving]
  - Hyperaesthesia [Unknown]
  - General physical health deterioration [Fatal]
  - Weight decreased [Not Recovered/Not Resolved]
  - Skin abrasion [Unknown]

NARRATIVE: CASE EVENT DATE: 20150330
